FAERS Safety Report 11997501 (Version 1)
Quarter: 2016Q1

REPORT INFORMATION
  Report Type: Spontaneous
  Country: RO (occurrence: RO)
  Receive Date: 20160203
  Receipt Date: 20160203
  Transmission Date: 20160526
  Serious: Yes (Other)
  Sender: FDA-Public Use
  Company Number: ALCN2016RO000932

PATIENT
  Age: 66 Year
  Sex: Female

DRUGS (4)
  1. DEXAMETHASONE. [Suspect]
     Active Substance: DEXAMETHASONE
     Indication: NECROTISING SCLERITIS
     Dosage: UNK
     Route: 047
  2. INDOMETACINUM [Suspect]
     Active Substance: INDOMETHACIN
     Indication: NECROTISING SCLERITIS
     Dosage: UNK
     Route: 047
  3. METHYLPREDNISOLONE. [Suspect]
     Active Substance: METHYLPREDNISOLONE
     Indication: NECROTISING SCLERITIS
     Dosage: 32 MG, QD
     Route: 062
  4. METHYLPREDNISOLONE. [Suspect]
     Active Substance: METHYLPREDNISOLONE
     Dosage: 48 MG, QD
     Route: 062

REACTIONS (2)
  - Scleritis [Recovering/Resolving]
  - Intraocular pressure increased [Recovered/Resolved]
